FAERS Safety Report 7371865-9 (Version None)
Quarter: 2011Q1

REPORT INFORMATION
  Report Type: 
  Country: None (occurrence: None)
  Receive Date: 20110324
  Receipt Date: 20110314
  Transmission Date: 20110831
  Serious: Yes (Hospitalization)
  Sender: FDA-Public Use
  Company Number: DE-ROCHE-766457

PATIENT
  Sex: Male
  Weight: 103 kg

DRUGS (9)
  1. FLUOROURACIL [Suspect]
     Indication: RECTAL CANCER
     Route: 042
     Dates: start: 20110118, end: 20110301
  2. ATROPIN [Concomitant]
     Dosage: GIVEN ON DAYS 1, 8, 15, 29, 36 AND 43.
     Route: 058
  3. VERGENTAN [Concomitant]
     Dosage: GIVEN ON DAYS 3-5 AND ON 10-12.
     Route: 048
  4. TETRYZOLIN [Concomitant]
     Dosage: EYE DROPS AS NEEDED.
  5. IRINOTECAN HYDROCHLORIDE [Suspect]
     Indication: RECTAL CANCER
     Route: 042
     Dates: start: 20110118, end: 20110301
  6. KEVATRIL [Concomitant]
     Dosage: ON DAYS 1+2 AND 8 AND 9.
     Route: 042
  7. DEXAMETHASONE [Concomitant]
     Dosage: GIVEN ON DAY 1 AND 2.
     Route: 042
  8. FOLINIC ACID [Concomitant]
     Indication: RECTAL CANCER
     Route: 042
     Dates: start: 20110118, end: 20110301
  9. BEVACIZUMAB [Suspect]
     Indication: RECTAL CANCER
     Dosage: LAST GIVEN DOSAGE PRIOR TO EVENTS WAS ON 2 MAR 2011.
     Route: 042

REACTIONS (3)
  - DIARRHOEA [None]
  - GENERAL PHYSICAL HEALTH DETERIORATION [None]
  - DEHYDRATION [None]
